FAERS Safety Report 5465832-X (Version None)
Quarter: 2007Q3

REPORT INFORMATION
  Report Type: 
  Country: None (occurrence: None)
  Receive Date: 20070919
  Receipt Date: 20070919
  Transmission Date: 20080115
  Serious: Yes (Death)
  Sender: FDA-Public Use
  Company Number: None

PATIENT
  Age: 35 Year
  Sex: Male
  Weight: 122.4712 kg

DRUGS (1)
  1. METHADONE HCL [Suspect]

REACTIONS (2)
  - DRUG TOXICITY [None]
  - MEDICATION ERROR [None]
